FAERS Safety Report 13167458 (Version 2)
Quarter: 2017Q1

REPORT INFORMATION
  Report Type: Spontaneous
  Country: US (occurrence: US)
  Receive Date: 20170131
  Receipt Date: 20170222
  Transmission Date: 20170428
  Serious: No
  Sender: FDA-Public Use
  Company Number: US-PFIZER INC-2017035979

PATIENT
  Age: 67 Year
  Sex: Female
  Weight: 61 kg

DRUGS (21)
  1. FLECTOR [Suspect]
     Active Substance: DICLOFENAC EPOLAMINE
     Indication: BACK DISORDER
     Dosage: 1 DF, 2X/DAY (EVERY 12 HOURS)
  2. ATORVASTATIN CALCIUM. [Concomitant]
     Active Substance: ATORVASTATIN CALCIUM
     Indication: BLOOD CHOLESTEROL
     Dosage: 20 MG, 1X/DAY
     Dates: start: 2002
  3. ASPIRIN /00002701/ [Concomitant]
     Active Substance: ASPIRIN
     Indication: TRANSIENT ISCHAEMIC ATTACK
     Dosage: 81 MG, 1X/DAY
  4. ACIDOPHILUS [Concomitant]
     Active Substance: LACTOBACILLUS ACIDOPHILUS
     Indication: PROBIOTIC THERAPY
     Dosage: UNK UNK, 1X/DAY
  5. PERCOCET /00446701/ [Concomitant]
     Active Substance: ACETAMINOPHEN\OXYCODONE HYDROCHLORIDE\OXYCODONE TEREPHTHALATE
     Indication: PAIN
     Dosage: 10 MG, UNK (TAKE ONE TO ONE AND ONE HALF)
  6. DULERA [Concomitant]
     Active Substance: FORMOTEROL FUMARATE DIHYDRATE\MOMETASONE FUROATE
     Indication: CHRONIC OBSTRUCTIVE PULMONARY DISEASE
  7. RESTASIS [Concomitant]
     Active Substance: CYCLOSPORINE
     Indication: DRY EYE
  8. HYDROCHLOROTHIAZIDE. [Concomitant]
     Active Substance: HYDROCHLOROTHIAZIDE
     Indication: DIURETIC THERAPY
     Dosage: 12 MG, UNK
     Dates: start: 2008
  9. XANAX [Concomitant]
     Active Substance: ALPRAZOLAM
     Indication: INSOMNIA
  10. LUMIGAN [Concomitant]
     Active Substance: BIMATOPROST
     Indication: GLAUCOMA
     Dosage: UNK
     Dates: start: 2010
  11. CALCIUM [Concomitant]
     Active Substance: CALCIUM
     Dosage: 1800 MG, 1X/DAY
  12. ESOMEPRAZOLE MAGNESIUM. [Concomitant]
     Active Substance: ESOMEPRAZOLE MAGNESIUM
     Indication: GASTROOESOPHAGEAL REFLUX DISEASE
     Dosage: 40 MG, 1X/DAY
     Dates: start: 2011
  13. SPIRONOLACTONE. [Concomitant]
     Active Substance: SPIRONOLACTONE
     Indication: DIURETIC THERAPY
     Dosage: 25 MG, 1X/DAY
     Dates: start: 2008
  14. OMEGA 3 FISH OIL /01334101/ [Concomitant]
     Active Substance: FISH OIL
     Dosage: 2 DF, DAILY
  15. BIOTENE /03475601/ [Concomitant]
     Dosage: 100 UG, 1X/DAY
  16. VITAMIN D /00107901/ [Concomitant]
     Active Substance: ERGOCALCIFEROL
     Dosage: 400 MG, 1X/DAY
  17. CLARINEX /01202601/ [Concomitant]
     Active Substance: LORATADINE\PSEUDOEPHEDRINE SULFATE
     Indication: HYPERSENSITIVITY
     Dosage: 5 MG, 1X/DAY
  18. XANAX [Concomitant]
     Active Substance: ALPRAZOLAM
     Indication: ANXIETY
     Dosage: 2 MG, AS NEEDED
  19. DULERA [Concomitant]
     Active Substance: FORMOTEROL FUMARATE DIHYDRATE\MOMETASONE FUROATE
     Indication: ASTHMA
     Dosage: 2 DF, 2X/DAY
  20. MECLIZINE [Concomitant]
     Active Substance: MECLIZINE HYDROCHLORIDE
     Indication: VERTIGO
     Dosage: 25 MG, AS NEEDED
  21. LEVOTHYROXINE SODIUM. [Concomitant]
     Active Substance: LEVOTHYROXINE SODIUM
     Indication: AUTOIMMUNE THYROIDITIS
     Dosage: 0.1 MG, 1X/DAY
     Dates: start: 2001

REACTIONS (3)
  - Intentional product misuse [Not Recovered/Not Resolved]
  - Application site vesicles [Not Recovered/Not Resolved]
  - Application site pruritus [Not Recovered/Not Resolved]

NARRATIVE: CASE EVENT DATE: 201611
